FAERS Safety Report 5985152-4 (Version None)
Quarter: 2008Q4

REPORT INFORMATION
  Report Type: 
  Country: None (occurrence: None)
  Receive Date: 20081203
  Receipt Date: 20081121
  Transmission Date: 20090506
  Serious: Yes (Other)
  Sender: FDA-Public Use
  Company Number: 232209K08USA

PATIENT
  Age: 66 Year
  Sex: Female
  Weight: 59 kg

DRUGS (5)
  1. REBIF [Suspect]
     Indication: MULTIPLE SCLEROSIS
     Dosage: 44 MCG, 3 IN 1 WEEKS, SUBCUTANEOUS
     Route: 058
     Dates: start: 20061003
  2. VITAMIN (VITAMINS) [Concomitant]
  3. LISINOPRIL [Concomitant]
  4. DETROL [Concomitant]
  5. ZANAFLEX [Concomitant]

REACTIONS (1)
  - THROMBOSIS [None]
